FAERS Safety Report 21594171 (Version 1)
Quarter: 2022Q4

REPORT INFORMATION
  Report Type: Report from Study
  Country: US (occurrence: US)
  Receive Date: 20221115
  Receipt Date: 20221115
  Transmission Date: 20230113
  Serious: No
  Sender: FDA-Public Use
  Company Number: US-ABBVIE-4155880

PATIENT
  Age: 56 Year
  Sex: Female

DRUGS (15)
  1. HUMIRA [Suspect]
     Active Substance: ADALIMUMAB
     Indication: Rheumatoid arthritis
     Dosage: FORM STRENGTH: 40 MILLIGRAM
     Route: 058
  2. PREGABALIN [Concomitant]
     Active Substance: PREGABALIN
     Indication: Product used for unknown indication
     Dosage: 300MG
  3. FOLIC ACID [Concomitant]
     Active Substance: FOLIC ACID
     Indication: Product used for unknown indication
  4. HYDROCODONE [Concomitant]
     Active Substance: HYDROCODONE
     Indication: Product used for unknown indication
     Dosage: TAB 7.5-325MG
  5. FENOFIBRATE [Concomitant]
     Active Substance: FENOFIBRATE
     Indication: Product used for unknown indication
  6. JARDIANCE [Concomitant]
     Active Substance: EMPAGLIFLOZIN
     Indication: Product used for unknown indication
     Dosage: TAB 25MG
  7. BACLOFEN POW [Concomitant]
     Indication: Product used for unknown indication
  8. ASPIRIN POW [Concomitant]
     Indication: Product used for unknown indication
  9. LEVOTHYROXINE [Concomitant]
     Active Substance: LEVOTHYROXINE
     Indication: Product used for unknown indication
     Dosage: TAB 100MCG
  10. OMEPRAZOLE CPD [Concomitant]
     Indication: Product used for unknown indication
  11. METFORMIN HYDROCHLORIDE [Concomitant]
     Active Substance: METFORMIN HYDROCHLORIDE
     Indication: Product used for unknown indication
     Dosage: TAB 1000MG
  12. LEFLUNOMIDE [Concomitant]
     Active Substance: LEFLUNOMIDE
     Indication: Product used for unknown indication
     Dosage: TAB 20MG
  13. MYRBETRIQ TB2 [Concomitant]
     Indication: Product used for unknown indication
  14. CIMETIDINE [Concomitant]
     Active Substance: CIMETIDINE
     Indication: Product used for unknown indication
     Dosage: 2 TAB
  15. LOSARTAN POTASSIUM [Concomitant]
     Active Substance: LOSARTAN POTASSIUM
     Indication: Product used for unknown indication
     Dosage: TAB 100MG

REACTIONS (1)
  - Fall [Not Recovered/Not Resolved]

NARRATIVE: CASE EVENT DATE: 20220930
